FAERS Safety Report 4909780-X (Version None)
Quarter: 2006Q1

REPORT INFORMATION
  Report Type: 
  Country: None (occurrence: None)
  Receive Date: 20060213
  Receipt Date: 20060206
  Transmission Date: 20060701
  Serious: Yes (Hospitalization)
  Sender: FDA-Public Use
  Company Number: NL-MERCK-0602NLD00008

PATIENT
  Sex: Female

DRUGS (1)
  1. HYZAAR [Suspect]
     Route: 048
     Dates: start: 20040101

REACTIONS (6)
  - CHEST PAIN [None]
  - DYSPHAGIA [None]
  - EATING DISORDER [None]
  - LOCALISED OEDEMA [None]
  - OEDEMA MOUTH [None]
  - TONGUE OEDEMA [None]
